FAERS Safety Report 18076351 (Version 1)
Quarter: 2020Q3

REPORT INFORMATION
  Report Type: Spontaneous
  Country: US (occurrence: US)
  Receive Date: 20200727
  Receipt Date: 20200727
  Transmission Date: 20201103
  Serious: No
  Sender: FDA-Public Use
  Company Number: US-ABBVIE-20K-163-3460528-00

PATIENT
  Sex: Female

DRUGS (1)
  1. SYNTHROID [Suspect]
     Active Substance: LEVOTHYROXINE SODIUM
     Indication: PRODUCT USED FOR UNKNOWN INDICATION
     Route: 048

REACTIONS (12)
  - Asthenia [Unknown]
  - Hypothyroidism [Unknown]
  - Salt craving [Unknown]
  - Nausea [Unknown]
  - Somnolence [Unknown]
  - Hair texture abnormal [Unknown]
  - Dry skin [Unknown]
  - Increased appetite [Unknown]
  - Weight increased [Unknown]
  - Fatigue [Unknown]
  - Muscle spasms [Unknown]
  - Adverse drug reaction [Unknown]
